FAERS Safety Report 8613024-5 (Version None)
Quarter: 2012Q3

REPORT INFORMATION
  Report Type: 
  Country: None (occurrence: None)
  Receive Date: 20120822
  Receipt Date: 20120816
  Transmission Date: 20120928
  Serious: Yes (Other)
  Sender: FDA-Public Use
  Company Number: CHPA2012US018304

PATIENT
  Sex: Male

DRUGS (1)
  1. NUPERCAINAL HEMORRHOIDAL/ANES OINTMENT [Suspect]
     Indication: EXCORIATION
     Dosage: UNK, AS NEEDED
     Route: 061
     Dates: start: 19720101

REACTIONS (5)
  - BURNS SECOND DEGREE [None]
  - WRONG TECHNIQUE IN DRUG USAGE PROCESS [None]
  - SKIN EXFOLIATION [None]
  - THERAPEUTIC RESPONSE UNEXPECTED [None]
  - OFF LABEL USE [None]
